FAERS Safety Report 17030702 (Version 1)
Quarter: 2019Q4

REPORT INFORMATION
  Report Type: Spontaneous
  Country: US (occurrence: US)
  Receive Date: 20191011
  Receipt Date: 20191011
  Transmission Date: 20200122
  Serious: Yes (Other)
  Sender: FDA-Public Use
  Company Number: None

PATIENT
  Age: 51 Year
  Sex: Female

DRUGS (1)
  1. CREST/WHITENING SYSTEMS/STRIPS [Suspect]
     Active Substance: HYDROGEN PEROXIDE
     Dosage: ?          OTHER ROUTE:INTRAORAL?
     Dates: end: 201902

REACTIONS (3)
  - Tooth injury [None]
  - Toothache [None]
  - Hyperaesthesia teeth [None]
